FAERS Safety Report 14407797 (Version 1)
Quarter: 2018Q1

REPORT INFORMATION
  Report Type: Spontaneous
  Country: US (occurrence: US)
  Receive Date: 20180118
  Receipt Date: 20180118
  Transmission Date: 20180509
  Serious: No
  Sender: FDA-Public Use
  Company Number: US-TEVA-2017-US-838629

PATIENT
  Sex: Male

DRUGS (2)
  1. MICONAZOLE. [Suspect]
     Active Substance: MICONAZOLE
     Indication: SKIN INFECTION
     Route: 065
  2. HYDROCORTISONE. [Suspect]
     Active Substance: HYDROCORTISONE
     Route: 065

REACTIONS (1)
  - Anorectal infection [Unknown]

NARRATIVE: CASE EVENT DATE: 20171219
